FAERS Safety Report 6414358-5 (Version None)
Quarter: 2009Q4

REPORT INFORMATION
  Report Type: 
  Country: None (occurrence: None)
  Receive Date: 20091026
  Receipt Date: 20091012
  Transmission Date: 20100525
  Serious: Yes (Other)
  Sender: FDA-Public Use
  Company Number: GB-MYLANLABS-2009S1017738

PATIENT
  Age: 40 Year
  Sex: Male
  Weight: 78 kg

DRUGS (5)
  1. AZATHIOPRINE [Suspect]
     Indication: CROHN'S DISEASE
     Route: 048
     Dates: start: 20090622, end: 20090913
  2. CELEBREX [Concomitant]
     Indication: DRUG USE FOR UNKNOWN INDICATION
  3. LOPERAMIDE HYDROCHLORIDE [Concomitant]
     Indication: DRUG USE FOR UNKNOWN INDICATION
  4. PREDNISOLONE [Concomitant]
     Indication: DRUG USE FOR UNKNOWN INDICATION
  5. QUESTRAN [Concomitant]
     Indication: DRUG USE FOR UNKNOWN INDICATION

REACTIONS (1)
  - DYSPNOEA [None]
